FAERS Safety Report 5079454-6 (Version None)
Quarter: 2006Q3

REPORT INFORMATION
  Report Type: 
  Country: None (occurrence: None)
  Receive Date: 20060811
  Receipt Date: 20060811
  Transmission Date: 20061208
  Serious: No
  Sender: FDA-Public Use
  Company Number: None

PATIENT
  Age: 40 Year
  Sex: Female
  Weight: 63.5036 kg

DRUGS (2)
  1. VIVAGLOBULIN 3.2 GM/20 ML [Suspect]
     Indication: IMMUNODEFICIENCY COMMON VARIABLE
     Dosage: 6.4 GM/40ML WEEKLY SC
     Route: 058
     Dates: start: 20060713
  2. VIVAGLOBULIN 3.2 GM/20 ML [Suspect]
     Indication: IMMUNODEFICIENCY COMMON VARIABLE
     Dosage: 6.4 GM/40ML WEEKLY SC
     Route: 058
     Dates: start: 20060720

REACTIONS (3)
  - INJECTION SITE DISCOLOURATION [None]
  - INJECTION SITE PAIN [None]
  - INJECTION SITE SWELLING [None]
